FAERS Safety Report 5342562-6 (Version None)
Quarter: 2007Q2

REPORT INFORMATION
  Report Type: 
  Country: None (occurrence: None)
  Receive Date: 20070601
  Receipt Date: 20070521
  Transmission Date: 20071010
  Serious: Yes (Death, Life-Threatening, Hospitalization)
  Sender: FDA-Public Use
  Company Number: DE-PFIZER INC-2007028862

PATIENT
  Sex: Male
  Weight: 90 kg

DRUGS (10)
  1. SU-011,248 [Suspect]
     Indication: METASTATIC RENAL CELL CARCINOMA
     Route: 048
     Dates: start: 20060414, end: 20060511
  2. SU-011,248 [Suspect]
     Route: 048
     Dates: start: 20070316, end: 20070402
  3. OPIPRAMOL [Concomitant]
     Indication: DEPRESSION
     Dates: start: 20020101, end: 20070407
  4. L-THYROXIN [Concomitant]
     Indication: HYPOTHYROIDISM
     Dates: start: 20040101, end: 20070407
  5. DURAGESIC-100 [Concomitant]
     Indication: PAIN
     Dates: start: 20060225, end: 20060623
  6. LACTOSE [Concomitant]
     Indication: CONSTIPATION
     Dates: start: 20060501, end: 20060623
  7. DULCOLAX [Concomitant]
     Indication: CONSTIPATION
     Route: 054
     Dates: start: 20060501, end: 20060623
  8. INFLUENZA VACCINE [Concomitant]
     Indication: PROPHYLAXIS
     Dates: start: 20061102, end: 20061102
  9. PNEUMOCOCCAL VACCINE [Concomitant]
     Indication: PROPHYLAXIS
     Dates: start: 20061102, end: 20061102
  10. AVELOX [Concomitant]
     Route: 048
     Dates: start: 20070325, end: 20070402

REACTIONS (3)
  - CARDIAC FAILURE [None]
  - HEPATIC FAILURE [None]
  - RENAL FAILURE [None]
